FAERS Safety Report 16449879 (Version 1)
Quarter: 2019Q2

REPORT INFORMATION
  Report Type: Spontaneous
  Country: US (occurrence: US)
  Receive Date: 20190509
  Receipt Date: 20190509
  Transmission Date: 20190711
  Serious: Yes (Life-Threatening, Hospitalization)
  Sender: FDA-Public Use
  Company Number: None

PATIENT
  Age: 80 Year
  Sex: Male
  Weight: 111.18 kg

DRUGS (1)
  1. HYDROMORPHONE [Suspect]
     Active Substance: HYDROMORPHONE
     Indication: PAIN
     Dosage: ?          OTHER DOSE:0.5MG;?
     Route: 042
     Dates: start: 20190508, end: 20190508

REACTIONS (9)
  - Pain in extremity [None]
  - Blister [None]
  - Respiratory distress [None]
  - Weight increased [None]
  - Lethargy [None]
  - Respiratory depression [None]
  - Peripheral swelling [None]
  - Product substitution issue [None]
  - Wound secretion [None]

NARRATIVE: CASE EVENT DATE: 20190508
